FAERS Safety Report 6399633-5 (Version None)
Quarter: 2009Q4

REPORT INFORMATION
  Report Type: 
  Country: None (occurrence: None)
  Receive Date: 20091014
  Receipt Date: 20090910
  Transmission Date: 20100525
  Serious: No
  Sender: FDA-Public Use
  Company Number: US-BAYER-200933231NA

PATIENT
  Sex: Female

DRUGS (2)
  1. MIRENA [Suspect]
     Indication: UTERINE ENLARGEMENT
     Route: 015
     Dates: start: 20090701
  2. GAS-X [Concomitant]
     Indication: ABDOMINAL DISTENSION

REACTIONS (1)
  - ABDOMINAL DISTENSION [None]
